FAERS Safety Report 7763754 (Version 3)
Quarter: 2012Q4

REPORT INFORMATION
  Report Type: Report from Study
  Country: FR (occurrence: FR)
  Receive Date: 20110118
  Receipt Date: 20121004
  Transmission Date: 20130627
  Serious: Yes (Hospitalization)
  Sender: FDA-Public Use
  Company Number: FR-ROCHE-752609

PATIENT
  Age: 68 Year
  Sex: Female
  Weight: 58 kg

DRUGS (9)
  1. CELLCEPT [Suspect]
     Indication: RENAL TRANSPLANT
     Route: 048
  2. EVEROLIMUS [Suspect]
     Indication: RENAL TRANSPLANT
     Dosage: PERMANENTLY DISCONTINUED.
     Route: 048
     Dates: start: 20100905, end: 20101221
  3. PREDNISONE/PREDNISONE [Suspect]
     Indication: RENAL TRANSPLANT
     Dosage: PERMANENTLY DISCONTINUED
     Route: 048
     Dates: start: 20100906, end: 20101221
  4. ROVALCYTE [Concomitant]
     Dosage: PER 48 HOUR
     Route: 065
  5. BACTRIM [Concomitant]
     Route: 065
  6. TENORMINE [Concomitant]
  7. PHOSPHONEUROS [Concomitant]
     Route: 065
  8. INIPOMP [Concomitant]
  9. EPREX [Concomitant]
     Dosage: DOSE; 10,000U
     Route: 065

REACTIONS (2)
  - Transplant rejection [Recovered/Resolved]
  - Fibrosis [None]
